FAERS Safety Report 17706100 (Version 1)
Quarter: 2020Q2

REPORT INFORMATION
  Report Type: Report from Study
  Country: US (occurrence: US)
  Receive Date: 20200424
  Receipt Date: 20200424
  Transmission Date: 20200714
  Serious: Yes (Hospitalization)
  Sender: FDA-Public Use
  Company Number: PHHO2016US012552

PATIENT
  Age: 48 Year
  Sex: Female
  Weight: 81.63 kg

DRUGS (7)
  1. FARYDAK [Suspect]
     Active Substance: PANOBINOSTAT
     Indication: PLASMA CELL MYELOMA
     Dosage: 10 MG, TIW
     Route: 048
     Dates: start: 20160822, end: 20160824
  2. MAXIDEX [Suspect]
     Active Substance: DEXAMETHASONE
     Indication: PLASMA CELL MYELOMA
     Dosage: 20 MG (DAY 1,2,4 AND 5)
     Route: 048
     Dates: start: 20160822
  3. BORTEZOMIB. [Suspect]
     Active Substance: BORTEZOMIB
     Indication: PLASMA CELL MYELOMA
     Dosage: 1.3 MG/M2 (DAY 1,4,8,11)
     Route: 058
     Dates: start: 20160822, end: 20160822
  4. MAXIDEX [Suspect]
     Active Substance: DEXAMETHASONE
     Dosage: 20 MG (DAY 1,2,4 AND 5)
     Route: 048
     Dates: start: 20160823
  5. LENALIDOMIDE [Suspect]
     Active Substance: LENALIDOMIDE
     Indication: PLASMA CELL MYELOMA
     Dosage: 25 MG (DAY 1 TO 14)
     Route: 048
     Dates: start: 20160822, end: 20160824
  6. MICARDIS [Concomitant]
     Active Substance: TELMISARTAN
     Indication: HYPERTENSION
     Dosage: 40 MG, QD
     Route: 065
     Dates: start: 20141203
  7. HYDROCHLOROTHIAZIDE. [Concomitant]
     Active Substance: HYDROCHLOROTHIAZIDE
     Indication: HYPERTENSION
     Dosage: 12.5 MG, QD
     Route: 065
     Dates: start: 20160601, end: 20160824

REACTIONS (4)
  - Syncope [Recovered/Resolved]
  - Nausea [Unknown]
  - Hypokalaemia [Recovered/Resolved]
  - Balance disorder [Unknown]

NARRATIVE: CASE EVENT DATE: 20160824
